FAERS Safety Report 7978211-8 (Version None)
Quarter: 2011Q4

REPORT INFORMATION
  Report Type: 
  Country: None (occurrence: None)
  Receive Date: 20111207
  Receipt Date: 20111014
  Transmission Date: 20120403
  Serious: Yes (Disabling)
  Sender: FDA-Public Use
  Company Number: 2011SP049036

PATIENT
  Age: 28 Year
  Sex: Female

DRUGS (1)
  1. NASONEX [Suspect]
     Indication: RHINITIS SEASONAL
     Dosage: 1 DF;QD;NAS
     Route: 045

REACTIONS (1)
  - VULVOVAGINAL CANDIDIASIS [None]
